FAERS Safety Report 4611872-X (Version None)
Quarter: 2005Q2

REPORT INFORMATION
  Report Type: 
  Country: None (occurrence: None)
  Receive Date: 20050308
  Receipt Date: 20050121
  Transmission Date: 20051028
  Serious: Yes (Other)
  Sender: FDA-Public Use
  Company Number: 2005UW01177

PATIENT
  Age: 43 Year
  Sex: Female
  Weight: 48.08 kg

DRUGS (10)
  1. CRESTOR [Suspect]
     Indication: BLOOD CHOLESTEROL INCREASED
     Dosage: 40 MG PO
     Route: 048
     Dates: start: 20040201
  2. LASIX [Concomitant]
  3. DYAZIDE [Concomitant]
  4. NORVASC [Concomitant]
  5. NEXIUM [Concomitant]
  6. GUAIFENESIN [Concomitant]
  7. ASPIRIN [Concomitant]
  8. ATENOLOL [Concomitant]
  9. POTASSIUM CHLORIDE [Concomitant]
  10. XANAX [Concomitant]

REACTIONS (4)
  - BLOOD POTASSIUM DECREASED [None]
  - INFLAMMATION [None]
  - MUSCLE SPASMS [None]
  - SKIN DISCOLOURATION [None]
